FAERS Safety Report 16096306 (Version 1)
Quarter: 2019Q1

REPORT INFORMATION
  Report Type: Spontaneous
  Country: GB (occurrence: GB)
  Receive Date: 20190320
  Receipt Date: 20190320
  Transmission Date: 20190418
  Serious: Yes (Other)
  Sender: FDA-Public Use
  Company Number: GB-MYLANLABS-2019M1021514

PATIENT

DRUGS (1)
  1. CLINDAMYCIN. [Suspect]
     Active Substance: CLINDAMYCIN
     Indication: PRODUCT USED FOR UNKNOWN INDICATION
     Dosage: 2400 MILLIGRAM, QD/600 MG, 4X/DAY
     Route: 063

REACTIONS (3)
  - Haematochezia [Recovered/Resolved]
  - Enterocolitis [Recovered/Resolved]
  - Maternal exposure during breast feeding [Unknown]
